FAERS Safety Report 18330441 (Version 1)
Quarter: 2020Q3

REPORT INFORMATION
  Report Type: Spontaneous
  Country: DE (occurrence: DE)
  Receive Date: 20200930
  Receipt Date: 20200930
  Transmission Date: 20201103
  Serious: Yes (Hospitalization, Other)
  Sender: FDA-Public Use
  Company Number: DE-MYLANLABS-2020M1081872

PATIENT
  Age: 96 Year
  Sex: Female

DRUGS (11)
  1. TORASEMID [Concomitant]
     Active Substance: TORSEMIDE
     Dosage: 10 MILLIGRAM (10 MG, 0.5?0?0?0, TABLETTEN)
     Route: 048
  2. PRAMIPEXOLE. [Suspect]
     Active Substance: PRAMIPEXOLE
     Indication: PRODUCT USED FOR UNKNOWN INDICATION
     Dosage: 0.17 MILLIGRAM (0.17 MG, 0?0?0?0.5, TABLETTEN)
     Route: 048
  3. APIXABAN [Suspect]
     Active Substance: APIXABAN
     Indication: PRODUCT USED FOR UNKNOWN INDICATION
     Dosage: 2.5 MILLIGRAM, BID (2.5 MG, 1?0?1?0, TABLETTEN)
     Route: 048
  4. MOLSIDOMIN [Concomitant]
     Active Substance: MOLSIDOMINE
     Dosage: 8 MILLIGRAM, QD (8 MG, 0?0?0?1, RETARD?TABLETTEN)
     Route: 048
  5. COLECALCIFEROL [Concomitant]
     Active Substance: CHOLECALCIFEROL
     Dosage: 1000 INTERNATIONAL UNIT, QD (1000 IE, 1?0?0?0, TABLETTEN)
     Route: 048
  6. DIGITOXIN [Concomitant]
     Active Substance: DIGITOXIN
     Dosage: 0.07 MILLIGRAM, QD (0.07 MG, 1?0?0?0, TABLETTEN)
     Route: 048
  7. PANTOPRAZOLE [Concomitant]
     Active Substance: PANTOPRAZOLE
     Dosage: 20 MILLIGRAM (20 MG, BEI BEDARF, TABLETTEN)
     Route: 048
  8. METAMIZOL                          /06276701/ [Concomitant]
     Active Substance: METAMIZOLE
     Dosage: 30 GTT DROPS (30 GTT, 4X, TROPFEN)
     Route: 048
  9. BISOPROLOL [Concomitant]
     Active Substance: BISOPROLOL
     Dosage: 5 MILLIGRAM, BID (5 MG, 1?0?1?0, TABLETTEN)
     Route: 048
  10. CALCIUM                            /07357001/ [Concomitant]
     Dosage: 500 MILLIGRAM, QD (500 MG, 0?1?0?0, BRAUSETABLETTEN)
     Route: 048
  11. CANDESARTAN. [Concomitant]
     Active Substance: CANDESARTAN
     Dosage: 16 MILLIGRAM, BID (16 MG, 1?0?1?0, TABLETTEN)
     Route: 048

REACTIONS (6)
  - Fall [Unknown]
  - Subdural haematoma [Unknown]
  - Headache [Unknown]
  - Wound [Unknown]
  - Internal haemorrhage [Unknown]
  - Skull fracture [Unknown]
